FAERS Safety Report 17098725 (Version 1)
Quarter: 2019Q4

REPORT INFORMATION
  Report Type: Spontaneous
  Country: US (occurrence: US)
  Receive Date: 20191105
  Receipt Date: 20191105
  Transmission Date: 20200122
  Serious: Yes (Other)
  Sender: FDA-Public Use
  Company Number: None

PATIENT
  Age: 65 Year
  Sex: Female

DRUGS (19)
  1. ATROVASTATIN [Concomitant]
     Active Substance: ATORVASTATIN CALCIUM
  2. MONTELUKAST [Concomitant]
     Active Substance: MONTELUKAST SODIUM
  3. LEVOTHYROXINE. [Concomitant]
     Active Substance: LEVOTHYROXINE
  4. AZATHIOPRINE. [Concomitant]
     Active Substance: AZATHIOPRINE
  5. KLORCON [Concomitant]
  6. CALCITRIOL. [Concomitant]
     Active Substance: CALCITRIOL
  7. SILDENAFIL. [Concomitant]
     Active Substance: SILDENAFIL
  8. METOPROLOL. [Concomitant]
     Active Substance: METOPROLOL
  9. GABAPENTIN. [Concomitant]
     Active Substance: GABAPENTIN
  10. FLONASE [Concomitant]
     Active Substance: FLUTICASONE PROPIONATE
  11. AMBRISENTAN 5MG TABLETS 30/BO: 5MG [Suspect]
     Active Substance: AMBRISENTAN
     Indication: PULMONARY ARTERIAL HYPERTENSION
     Route: 048
     Dates: start: 201905
  12. URSODIOL. [Concomitant]
     Active Substance: URSODIOL
  13. FOLIC ACID. [Concomitant]
     Active Substance: FOLIC ACID
  14. CALCIUM CARNONATE- VITAMIN D3 [Concomitant]
  15. BUMETANIDE. [Concomitant]
     Active Substance: BUMETANIDE
  16. ASPIRIN. [Concomitant]
     Active Substance: ASPIRIN
  17. BACLOFEN. [Concomitant]
     Active Substance: BACLOFEN
  18. VENTOLIN HFA [Concomitant]
     Active Substance: ALBUTEROL SULFATE
  19. AMLODIPINE [Concomitant]
     Active Substance: AMLODIPINE BESYLATE

REACTIONS (1)
  - Anaemia [None]

NARRATIVE: CASE EVENT DATE: 20191013
